FAERS Safety Report 7918652-8 (Version None)
Quarter: 2011Q4

REPORT INFORMATION
  Report Type: 
  Country: None (occurrence: None)
  Receive Date: 20111116
  Receipt Date: 20111114
  Transmission Date: 20120403
  Serious: Yes (Hospitalization)
  Sender: FDA-Public Use
  Company Number: IT-BAYER-2011-110251

PATIENT
  Age: 88 Year
  Sex: Female

DRUGS (4)
  1. ASPIRIN [Suspect]
     Indication: PROPHYLAXIS
     Dosage: 100 MG, QD
     Route: 048
     Dates: start: 20100101, end: 20111102
  2. LOSAZID [Concomitant]
     Dosage: DAILY DOSE 125 MG
     Route: 048
  3. LEVOTHYROXINE SODIUM [Concomitant]
     Dosage: DAILY DOSE 50 ?G
     Route: 048
  4. MEDIPO [Concomitant]
     Dosage: DAILY DOSE 20 MG
     Route: 048

REACTIONS (2)
  - EAR HAEMORRHAGE [None]
  - HAEMATURIA [None]
